FAERS Safety Report 22380350 (Version 1)
Quarter: 2023Q2

REPORT INFORMATION
  Report Type: Spontaneous
  Country: US (occurrence: None)
  Receive Date: 20230529
  Receipt Date: 20230529
  Transmission Date: 20230722
  Serious: No
  Sender: FDA-Public Use
  Company Number: 2023A122880

PATIENT
  Sex: Female

DRUGS (1)
  1. SYMBICORT [Suspect]
     Active Substance: BUDESONIDE\FORMOTEROL FUMARATE DIHYDRATE
     Indication: Asthma
     Dosage: TAKING 2 PUFFS IN MORNING AND 2 PUFFS AT NIGHT
     Route: 055
     Dates: start: 202211

REACTIONS (7)
  - Respiratory distress [Unknown]
  - Dizziness [Unknown]
  - Dyspnoea [Unknown]
  - Throat irritation [Unknown]
  - Incorrect dose administered by device [Unknown]
  - Device use issue [Unknown]
  - Extra dose administered [Unknown]
